FAERS Safety Report 11338479 (Version 1)
Quarter: 2015Q3

REPORT INFORMATION
  Report Type: Spontaneous
  Country: US (occurrence: US)
  Receive Date: 20150803
  Receipt Date: 20150803
  Transmission Date: 20151125
  Serious: No
  Sender: FDA-Public Use
  Company Number: US-ELI_LILLY_AND_COMPANY-US200710000172

PATIENT
  Age: 6 Year
  Sex: Male
  Weight: 27.21 kg

DRUGS (3)
  1. STRATTERA [Suspect]
     Active Substance: ATOMOXETINE HYDROCHLORIDE
     Dosage: 25 MG, DAILY (1/D)
     Dates: start: 20070929
  2. STRATTERA [Suspect]
     Active Substance: ATOMOXETINE HYDROCHLORIDE
     Indication: ATTENTION DEFICIT/HYPERACTIVITY DISORDER
     Dosage: 25 MG, DAILY (1/D)
     Dates: start: 200708, end: 200709
  3. STRATTERA [Suspect]
     Active Substance: ATOMOXETINE HYDROCHLORIDE
     Dosage: 25 MG, DAILY (1/D)
     Dates: start: 200709, end: 200709

REACTIONS (5)
  - Drug ineffective [Unknown]
  - Psychomotor hyperactivity [Unknown]
  - Fatigue [Recovered/Resolved]
  - Insomnia [Unknown]
  - Energy increased [Recovered/Resolved]

NARRATIVE: CASE EVENT DATE: 200708
